FAERS Safety Report 5385889-4 (Version None)
Quarter: 2007Q3

REPORT INFORMATION
  Report Type: 
  Country: None (occurrence: None)
  Receive Date: 20070710
  Receipt Date: 20070626
  Transmission Date: 20080115
  Serious: Yes (Death)
  Sender: FDA-Public Use
  Company Number: A-CH2007-16215

PATIENT
  Age: 70 Year
  Sex: Female

DRUGS (5)
  1. TRACLEER [Suspect]
     Indication: PULMONARY HYPERTENSION
     Dosage: SEE IMAGE
     Route: 048
     Dates: start: 20020101, end: 20020101
  2. TRACLEER [Suspect]
     Indication: PULMONARY HYPERTENSION
     Dosage: SEE IMAGE
     Route: 048
     Dates: start: 20020101, end: 20070518
  3. OMEPRAZOLE [Concomitant]
  4. ACETYLCYSTEINE [Concomitant]
  5. NIFEDIPINE [Concomitant]

REACTIONS (1)
  - AORTIC VALVE STENOSIS [None]
